FAERS Safety Report 5485801-3 (Version None)
Quarter: 2007Q4

REPORT INFORMATION
  Report Type: 
  Country: None (occurrence: None)
  Receive Date: 20071015
  Receipt Date: 20070720
  Transmission Date: 20080405
  Serious: Yes (Other)
  Sender: FDA-Public Use
  Company Number: JP-MERCK-0707USA03720

PATIENT
  Age: 71 Year
  Sex: Male

DRUGS (2)
  1. ZETIA [Suspect]
     Indication: HYPERCHOLESTEROLAEMIA
     Route: 048
     Dates: start: 20070707, end: 20070710
  2. CANDESARTAN CILEXETIL [Concomitant]
     Route: 065

REACTIONS (1)
  - MUSCLE DISORDER [None]
